FAERS Safety Report 18935020 (Version 1)
Quarter: 2021Q1

REPORT INFORMATION
  Report Type: Report from Study
  Country: IT (occurrence: IT)
  Receive Date: 20210224
  Receipt Date: 20210224
  Transmission Date: 20210420
  Serious: Yes (Life-Threatening, Other)
  Sender: FDA-Public Use
  Company Number: IT-ROCHE-2740799

PATIENT
  Age: 51 Year
  Sex: Female
  Weight: 53 kg

DRUGS (9)
  1. CARBOPLATINUM [Suspect]
     Active Substance: CARBOPLATIN
     Route: 042
     Dates: start: 20201210, end: 20210203
  2. PACLITAXEL. [Suspect]
     Active Substance: PACLITAXEL
     Indication: CERVIX CARCINOMA
     Dosage: DATE LAST ADMINISTRATION DOSE (271.25 MG) OF PACLITAXEL (FIRST OCCURRENCE OF THROMBOCYTOPENIA): 10/D
     Route: 042
     Dates: start: 20201210
  3. CARBOPLATINUM [Suspect]
     Active Substance: CARBOPLATIN
     Indication: CERVIX CARCINOMA
     Dosage: AUC 5 AS PER PROTOCOL?DATE OF LAST ADMINISTRATION DOSE (750 MG): 10/DEC/2020 (FIRST OCCURRENCE OF TH
     Route: 042
     Dates: start: 20201210
  4. LANSOPRAZOLE. [Concomitant]
     Active Substance: LANSOPRAZOLE
     Indication: PROPHYLAXIS
     Dosage: 1 TABLET/DIE
     Dates: start: 20200801
  5. PECFENT [Concomitant]
     Active Substance: FENTANYL CITRATE
     Indication: PAIN
     Dosage: IF NECESSARY
     Dates: start: 20201101
  6. ATEZOLIZUMAB. [Suspect]
     Active Substance: ATEZOLIZUMAB
     Indication: CERVIX CARCINOMA
     Dosage: LAST ADMINISTRATION DOSE: 10/DEC/2020 (FIRST OCCURRENCE OF THROMBOCYTOPENIA)?LAST ADMINISTRATION DOS
     Route: 041
     Dates: start: 20201210
  7. BEVACIZUMAB. [Suspect]
     Active Substance: BEVACIZUMAB
     Indication: CERVIX CARCINOMA
     Dosage: MOST RECENT DOSE TAKEN IS (840 MG):10/DEC/2020, ?ON 03/FEB/2021 LAST DOSE (795 MG) WAS ADMINISTERED.
     Route: 042
     Dates: start: 20201210
  8. MOVICOL [Concomitant]
     Active Substance: POLYETHYLENE GLYCOL 3350\POTASSIUM CHLORIDE\SODIUM BICARBONATE\SODIUM CHLORIDE
     Indication: CONSTIPATION
     Dates: start: 20201115
  9. DEPALGOS [Concomitant]
     Active Substance: ACETAMINOPHEN\OXYCODONE HYDROCHLORIDE
     Indication: PAIN
     Route: 048
     Dates: start: 20201101

REACTIONS (2)
  - Thrombocytopenia [Recovered/Resolved]
  - Thrombocytopenia [Not Recovered/Not Resolved]

NARRATIVE: CASE EVENT DATE: 20201223
